FAERS Safety Report 4655972-7 (Version None)
Quarter: 2005Q2

REPORT INFORMATION
  Report Type: 
  Country: None (occurrence: None)
  Receive Date: 20050505
  Receipt Date: 20050325
  Transmission Date: 20051028
  Serious: Yes (Other)
  Sender: FDA-Public Use
  Company Number: 800327

PATIENT
  Age: 57 Year
  Sex: Female
  Weight: 75.5 kg

DRUGS (19)
  1. EXTRANEAL [Suspect]
     Indication: RENAL FAILURE CHRONIC
     Dosage: 1000 ML; QD; INTRAPERITONEAL
     Route: 033
     Dates: start: 20031009
  2. DIANEAL PD-2 2.5 [Concomitant]
  3. TAKEPRON [Concomitant]
  4. TRYPTANOL [Concomitant]
  5. AROPHALM [Concomitant]
  6. ALFAROL [Concomitant]
  7. CLARITIN [Concomitant]
  8. MUCOSTA [Concomitant]
  9. PROVERA [Concomitant]
  10. VERAPAMIL [Concomitant]
  11. BAYASPIRIN [Concomitant]
  12. PREMARIN [Concomitant]
  13. LOXONIN [Concomitant]
  14. RENAGEL [Concomitant]
  15. HORNEL [Concomitant]
  16. ARTIST [Concomitant]
  17. CARDENALIN [Concomitant]
  18. NORVASC [Concomitant]
  19. DIOVAN [Concomitant]

REACTIONS (4)
  - ANAEMIA [None]
  - CARDIOMEGALY [None]
  - HAEMODIALYSIS [None]
  - PULMONARY OEDEMA [None]
